FAERS Safety Report 10162441 (Version 11)
Quarter: 2015Q4

REPORT INFORMATION
  Report Type: Report from Study
  Country: US (occurrence: US)
  Receive Date: 20140509
  Receipt Date: 20151224
  Transmission Date: 20160304
  Serious: Yes (Hospitalization, Other)
  Sender: FDA-Public Use
  Company Number: US-SA-2014SA058716

PATIENT
  Age: 64 Year
  Sex: Female

DRUGS (4)
  1. AMANTADINE [Concomitant]
     Active Substance: AMANTADINE
  2. AUBAGIO [Suspect]
     Active Substance: TERIFLUNOMIDE
     Indication: MULTIPLE SCLEROSIS
     Route: 048
     Dates: start: 20151203
  3. AMANTADINE [Concomitant]
     Active Substance: AMANTADINE
  4. AUBAGIO [Suspect]
     Active Substance: TERIFLUNOMIDE
     Indication: MULTIPLE SCLEROSIS
     Route: 048
     Dates: start: 20140307, end: 20151124

REACTIONS (23)
  - Clostridium difficile infection [Unknown]
  - Diarrhoea [Unknown]
  - Urinary tract infection [Unknown]
  - Peroneal nerve palsy [Unknown]
  - Tremor [Unknown]
  - Dysarthria [Unknown]
  - Cystitis [Unknown]
  - Herpes zoster [Recovered/Resolved]
  - Muscular weakness [Recovering/Resolving]
  - Walking aid user [Unknown]
  - Fall [Unknown]
  - Asthenia [Unknown]
  - Haematoma [Unknown]
  - Oedema peripheral [Unknown]
  - Decreased appetite [Unknown]
  - Head injury [Unknown]
  - Nasopharyngitis [Recovering/Resolving]
  - Drug ineffective [Unknown]
  - Unevaluable event [Unknown]
  - Weight decreased [Unknown]
  - Gait disturbance [Not Recovered/Not Resolved]
  - Cough [Recovering/Resolving]
  - Nuclear magnetic resonance imaging abnormal [Unknown]

NARRATIVE: CASE EVENT DATE: 2014
